FAERS Safety Report 8810263 (Version 6)
Quarter: 2013Q1

REPORT INFORMATION
  Report Type: Spontaneous
  Country: US (occurrence: US)
  Receive Date: 20120926
  Receipt Date: 20130228
  Transmission Date: 20140127
  Serious: No
  Sender: FDA-Public Use
  Company Number: US-009507513-1209USA007274

PATIENT
  Sex: Female

DRUGS (2)
  1. PEG-INTRON [Suspect]
     Indication: HEPATITIS C
     Dosage: REDIPEN
     Route: 058
     Dates: start: 20120831
  2. REBETOL [Suspect]
     Indication: HEPATITIS C
     Dosage: UNK
     Route: 048
     Dates: start: 20120831

REACTIONS (33)
  - Back pain [Unknown]
  - Drug dose omission [Unknown]
  - Pain [Unknown]
  - Oral pain [Unknown]
  - Dry mouth [Unknown]
  - Somnolence [Unknown]
  - Influenza [Unknown]
  - Hyperhidrosis [Unknown]
  - Pain in extremity [Unknown]
  - Dry mouth [Unknown]
  - Disease recurrence [Unknown]
  - Insomnia [Recovered/Resolved]
  - Fatigue [Unknown]
  - Chills [Unknown]
  - Pyrexia [Unknown]
  - Headache [Unknown]
  - Pyrexia [Unknown]
  - Fatigue [Unknown]
  - Chills [Unknown]
  - Cellulitis [Unknown]
  - Fatigue [Unknown]
  - Influenza like illness [Unknown]
  - Chills [Unknown]
  - Pyrexia [Unknown]
  - Mood swings [Unknown]
  - Pruritus [Unknown]
  - Eye pain [Unknown]
  - Haemoglobin decreased [Unknown]
  - Injection site reaction [Unknown]
  - Alopecia [Unknown]
  - Fatigue [Unknown]
  - Depression [Unknown]
  - Weight decreased [Unknown]
